FAERS Safety Report 10079187 (Version 1)
Quarter: 2014Q2

REPORT INFORMATION
  Report Type: Spontaneous
  Country: US (occurrence: None)
  Receive Date: 20140414
  Receipt Date: 20140414
  Transmission Date: 20141212
  Serious: Yes (Other)
  Sender: FDA-Public Use
  Company Number: None

PATIENT
  Age: 60 Year
  Sex: Female

DRUGS (8)
  1. COPAXONE [Suspect]
     Indication: MULTIPLE SCLEROSIS
     Route: 058
     Dates: start: 20090201
  2. MAXAID [Concomitant]
  3. SYNTHROID [Concomitant]
  4. BELVIQ [Concomitant]
  5. VESICARE [Concomitant]
  6. AMITRIPTYLIN [Concomitant]
  7. BACTRIM [Concomitant]
  8. KEFLEX [Concomitant]

REACTIONS (1)
  - Cellulitis [None]
